FAERS Safety Report 17035512 (Version 1)
Quarter: 2019Q4

REPORT INFORMATION
  Report Type: Spontaneous
  Country: US (occurrence: US)
  Receive Date: 20191115
  Receipt Date: 20191115
  Transmission Date: 20200122
  Serious: Yes (Death)
  Sender: FDA-Public Use
  Company Number: NVSC2019US035117

PATIENT
  Sex: Male

DRUGS (1)
  1. KISQALI [Suspect]
     Active Substance: RIBOCICLIB
     Indication: BREAST CANCER MALE
     Dosage: 600 MG, QD
     Route: 065

REACTIONS (3)
  - Malignant neoplasm progression [Fatal]
  - Product use issue [Unknown]
  - Breast cancer male [Fatal]
